FAERS Safety Report 25820124 (Version 2)
Quarter: 2025Q4

REPORT INFORMATION
  Report Type: Report from Study
  Country: US (occurrence: US)
  Receive Date: 20250919
  Receipt Date: 20251009
  Transmission Date: 20260118
  Serious: Yes (Other)
  Sender: ALEXION PHARMACEUTICALS
  Company Number: US-AstraZeneca-CH-00945844A

PATIENT
  Sex: Female

DRUGS (2)
  1. ULTOMIRIS [Suspect]
     Active Substance: RAVULIZUMAB-CWVZ
     Dosage: UNK
     Route: 065
  2. ASPIRIN [Concomitant]
     Active Substance: ASPIRIN
     Dosage: UNK
     Route: 065

REACTIONS (17)
  - Mental impairment [Unknown]
  - Arthralgia [Unknown]
  - Asthenia [Unknown]
  - Myalgia [Recovered/Resolved]
  - Fall [Unknown]
  - Chest discomfort [Unknown]
  - Muscle tightness [Unknown]
  - Tension headache [Unknown]
  - Disturbance in attention [Unknown]
  - Throat tightness [Unknown]
  - Fatigue [Unknown]
  - Dyspnoea [Unknown]
  - Gait disturbance [Unknown]
  - Weight decreased [Unknown]
  - Breast discolouration [Unknown]
  - Contrast media reaction [Unknown]
  - Anhedonia [Unknown]
